FAERS Safety Report 23907123 (Version 2)
Quarter: 2024Q2

REPORT INFORMATION
  Report Type: Report from Study
  Country: IT (occurrence: IT)
  Receive Date: 20240528
  Receipt Date: 20240530
  Transmission Date: 20240715
  Serious: Yes (Life-Threatening, Other)
  Sender: FDA-Public Use
  Company Number: IT-002147023-NVSC2024IT109879

PATIENT
  Sex: Male
  Weight: 65 kg

DRUGS (2)
  1. MAYZENT [Suspect]
     Active Substance: SIPONIMOD
     Indication: Secondary progressive multiple sclerosis
     Dosage: 1CP,1MG, 1 CP/DIE
     Route: 048
     Dates: start: 20191230, end: 20231220
  2. MAYZENT [Suspect]
     Active Substance: SIPONIMOD
     Dosage: 1 MG (1CP 5 DAYS AT WEEK)
     Route: 048
     Dates: start: 20231220

REACTIONS (2)
  - Lymphopenia [Recovering/Resolving]
  - Epilepsy [Recovering/Resolving]

NARRATIVE: CASE EVENT DATE: 20231130
